FAERS Safety Report 7375745 (Version 3)
Quarter: 2013Q4

REPORT INFORMATION
  Report Type: Spontaneous
  Country: US (occurrence: US)
  Receive Date: 20100504
  Receipt Date: 20131216
  Transmission Date: 20140711
  Serious: No
  Sender: FDA-Public Use
  Company Number: US-JNJFOC-20100405747

PATIENT
  Age: 58 Year
  Sex: Female
  Weight: 79.38 kg

DRUGS (12)
  1. SANDOZ FENTANYL TRANSDERMAL SYSTEM [Suspect]
     Indication: PROCTALGIA
     Route: 062
     Dates: start: 2005, end: 201003
  2. SANDOZ FENTANYL TRANSDERMAL SYSTEM [Suspect]
     Indication: VULVOVAGINAL PAIN
     Route: 062
     Dates: start: 2005, end: 201003
  3. SANDOZ FENTANYL TRANSDERMAL SYSTEM [Suspect]
     Indication: SPINAL CORD INJURY
     Route: 062
     Dates: start: 2005, end: 201003
  4. SANDOZ FENTANYL TRANSDERMAL SYSTEM [Suspect]
     Indication: PAIN
     Route: 062
     Dates: start: 2005, end: 201003
  5. SANDOZ FENTANYL TRANSDERMAL SYSTEM [Suspect]
     Indication: PROCTALGIA
     Dosage: NDC# 0781-724455
     Route: 062
     Dates: start: 201003
  6. SANDOZ FENTANYL TRANSDERMAL SYSTEM [Suspect]
     Indication: VULVOVAGINAL PAIN
     Dosage: NDC# 0781-724455
     Route: 062
     Dates: start: 201003
  7. SANDOZ FENTANYL TRANSDERMAL SYSTEM [Suspect]
     Indication: SPINAL CORD INJURY
     Dosage: NDC# 0781-724455
     Route: 062
     Dates: start: 201003
  8. SANDOZ FENTANYL TRANSDERMAL SYSTEM [Suspect]
     Indication: PAIN
     Dosage: NDC# 0781-724455
     Route: 062
     Dates: start: 201003
  9. UNSPECIFIED FENTANYL TRANSDERMAL SYSTEM [Suspect]
     Indication: SPINAL CORD INJURY
     Dosage: NDC# 0781-724455
     Route: 062
     Dates: start: 2003, end: 2005
  10. XANAX [Concomitant]
     Indication: ANXIETY DISORDER
     Route: 048
     Dates: start: 1967
  11. ZOLOFT [Concomitant]
     Indication: DEPRESSION
     Route: 048
     Dates: start: 2000
  12. NUCYNTA [Concomitant]
     Indication: PAIN
     Route: 048
     Dates: start: 201003

REACTIONS (14)
  - Drug administered at inappropriate site [Not Recovered/Not Resolved]
  - Application site discolouration [Not Recovered/Not Resolved]
  - Application site urticaria [Not Recovered/Not Resolved]
  - Application site scar [Recovered/Resolved]
  - Application site vesicles [Not Recovered/Not Resolved]
  - Drug administered at inappropriate site [Recovered/Resolved]
  - Application site vesicles [Recovered/Resolved]
  - Drug ineffective [Not Recovered/Not Resolved]
  - Application site pruritus [Not Recovered/Not Resolved]
  - Faecaloma [Not Recovered/Not Resolved]
  - Incorrect dose administered [Recovered/Resolved]
  - Withdrawal syndrome [Recovered/Resolved]
  - Product quality issue [Not Recovered/Not Resolved]
  - Vulvovaginal pain [Recovered/Resolved]
